FAERS Safety Report 15157754 (Version 2)
Quarter: 2019Q1

REPORT INFORMATION
  Report Type: Spontaneous
  Country: US (occurrence: US)
  Receive Date: 20180718
  Receipt Date: 20190116
  Transmission Date: 20190417
  Serious: No
  Sender: FDA-Public Use
  Company Number: US-PFIZER INC-2018287382

PATIENT
  Age: 8 Year
  Sex: Female

DRUGS (2)
  1. GENOTROPIN [Suspect]
     Active Substance: SOMATROPIN
     Dosage: 1.6 MG, DAILY
     Dates: start: 201705
  2. GENOTROPIN [Suspect]
     Active Substance: SOMATROPIN
     Dosage: 0.8 MG, DAILY

REACTIONS (13)
  - Blood creatinine decreased [Unknown]
  - Blood immunoglobulin A decreased [Unknown]
  - Fatigue [Not Recovered/Not Resolved]
  - Sleep disorder [Not Recovered/Not Resolved]
  - Product dose omission [Unknown]
  - Headache [Unknown]
  - Constipation [Not Recovered/Not Resolved]
  - Lymphocyte count increased [Unknown]
  - Initial insomnia [Not Recovered/Not Resolved]
  - Mean platelet volume decreased [Unknown]
  - Blood alkaline phosphatase decreased [Unknown]
  - Blood urea nitrogen/creatinine ratio increased [Unknown]
  - Blood triglycerides increased [Unknown]

NARRATIVE: CASE EVENT DATE: 20181117
